FAERS Safety Report 8472295-9 (Version None)
Quarter: 2012Q2

REPORT INFORMATION
  Report Type: 
  Country: None (occurrence: None)
  Receive Date: 20120323
  Receipt Date: 20110819
  Transmission Date: 20120825
  Serious: Yes (Other)
  Sender: FDA-Public Use
  Company Number: 163-21880-11082474

PATIENT
  Age: 61 Year
  Sex: Male
  Weight: 94.8018 kg

DRUGS (10)
  1. FLOMAX [Concomitant]
  2. PROTONIX [Concomitant]
  3. GABAPENTIN [Concomitant]
  4. ACYCLOVIR [Concomitant]
  5. LEVAQUIN [Concomitant]
  6. MAG OXIDE (MAGNESIUM OXIDE) [Concomitant]
  7. SERTRALINE HYDROCHLORIDE [Concomitant]
  8. REVLIMID [Suspect]
     Indication: MULTIPLE MYELOMA
     Dosage: 5 MG, DAILY X 21 DAYS, PO
     Route: 048
     Dates: start: 20110103
  9. METANX (METANX) [Concomitant]
  10. SINGULAIR [Concomitant]

REACTIONS (1)
  - RECTAL HAEMORRHAGE [None]
